FAERS Safety Report 5406934-3 (Version None)
Quarter: 2007Q3

REPORT INFORMATION
  Report Type: 
  Country: None (occurrence: None)
  Receive Date: 20070803
  Receipt Date: 20070803
  Transmission Date: 20080115
  Serious: Yes (Other)
  Sender: FDA-Public Use
  Company Number: None

PATIENT
  Age: 53 Year
  Sex: Female
  Weight: 48.5349 kg

DRUGS (2)
  1. PEG-INTRON [Suspect]
     Indication: HEPATITIS C
     Dosage: 0.4ML QW SQ
     Route: 058
     Dates: start: 20070201, end: 20070801
  2. RIBAVIRIN [Suspect]
     Indication: HEPATITIS C
     Dosage: 200MG QD PO
     Route: 048
     Dates: start: 20070201, end: 20070801

REACTIONS (1)
  - RED BLOOD CELL COUNT DECREASED [None]
